FAERS Safety Report 16962170 (Version 1)
Quarter: 2019Q4

REPORT INFORMATION
  Report Type: Spontaneous
  Country: US (occurrence: US)
  Receive Date: 20191025
  Receipt Date: 20191025
  Transmission Date: 20200122
  Serious: No
  Sender: FDA-Public Use
  Company Number: US-JNJFOC-20191029066

PATIENT
  Sex: Male
  Weight: 103.51 kg

DRUGS (1)
  1. LEVAQUIN [Suspect]
     Active Substance: LEVOFLOXACIN
     Indication: PROSTATE INFECTION
     Route: 048
     Dates: start: 20190901, end: 201910

REACTIONS (3)
  - Arthropathy [Not Recovered/Not Resolved]
  - Tendon pain [Unknown]
  - Tendon disorder [Recovered/Resolved]
